FAERS Safety Report 7637726-2 (Version None)
Quarter: 2011Q3

REPORT INFORMATION
  Report Type: 
  Country: None (occurrence: None)
  Receive Date: 20110727
  Receipt Date: 20110719
  Transmission Date: 20111222
  Serious: Yes (Other)
  Sender: FDA-Public Use
  Company Number: VE-AMGEN-VENSP2011034692

PATIENT
  Age: 64 Year
  Sex: Female

DRUGS (1)
  1. ENBREL [Suspect]
     Indication: PSORIATIC ARTHROPATHY
     Dosage: UNK, WEEKLY
     Route: 058
     Dates: start: 20110101

REACTIONS (3)
  - VOMITING [None]
  - DIARRHOEA HAEMORRHAGIC [None]
  - DIARRHOEA [None]
